FAERS Safety Report 21468133 (Version 5)
Quarter: 2023Q4

REPORT INFORMATION
  Report Type: Report from Study
  Country: US (occurrence: US)
  Receive Date: 20221017
  Receipt Date: 20231129
  Transmission Date: 20240109
  Serious: Yes (Other)
  Sender: FDA-Public Use
  Company Number: US-HORIZON THERAPEUTICS-HZN-2022-007729

PATIENT

DRUGS (32)
  1. RAYOS [Suspect]
     Active Substance: PREDNISONE
     Indication: Product used for unknown indication
     Dosage: 5 MG, QD
     Route: 048
     Dates: start: 20170721
  2. CYCLOSPORINE [Suspect]
     Active Substance: CYCLOSPORINE
     Indication: Bronchiolitis obliterans syndrome
     Dosage: 10 MG, BID
     Dates: start: 20220422, end: 20220516
  3. CYCLOSPORINE [Suspect]
     Active Substance: CYCLOSPORINE
     Dosage: 10 MG, BID
     Dates: start: 20220601, end: 20220915
  4. TACROLIMUS [Suspect]
     Active Substance: TACROLIMUS
     Indication: Immunosuppression
     Dosage: 0.5 MG, QD
     Route: 048
     Dates: start: 20220601, end: 20221018
  5. TACROLIMUS [Suspect]
     Active Substance: TACROLIMUS
     Dosage: 0.5 MG, BID
     Route: 048
     Dates: start: 20221018, end: 20221104
  6. TACROLIMUS [Suspect]
     Active Substance: TACROLIMUS
     Dosage: 0.5 MG, QD
     Route: 048
     Dates: start: 20221104, end: 20221118
  7. TACROLIMUS [Suspect]
     Active Substance: TACROLIMUS
     Dosage: 1 MG, QD
     Route: 048
     Dates: start: 20221104, end: 20221118
  8. TACROLIMUS [Suspect]
     Active Substance: TACROLIMUS
     Dosage: 0.5 MG, QD
     Route: 048
     Dates: start: 20221118
  9. TACROLIMUS [Suspect]
     Active Substance: TACROLIMUS
     Dosage: 0.5 MG, THREE TIMES PER WEEK
     Route: 048
     Dates: start: 20221118
  10. PREDNISONE [Suspect]
     Active Substance: PREDNISONE
     Indication: Immunosuppression
     Dosage: 5 MG, QD
     Route: 048
     Dates: start: 20220422
  11. VITAMINS NOS [Concomitant]
     Active Substance: VITAMINS
     Indication: Prophylaxis
     Dosage: UNK
     Route: 065
     Dates: start: 2004
  12. MELATONIN [Concomitant]
     Active Substance: MELATONIN
     Indication: Insomnia
     Dosage: UNK
     Route: 065
     Dates: start: 201601
  13. ACETAMINOPHEN [Concomitant]
     Active Substance: ACETAMINOPHEN
     Indication: Pain
     Dosage: UNK
     Route: 065
     Dates: start: 20170718, end: 20221006
  14. ACETAMINOPHEN [Concomitant]
     Active Substance: ACETAMINOPHEN
     Dosage: 325 MG, 2 TO 4 TABLETS WHEN NEEDED (PRN)
     Route: 065
     Dates: start: 20221006, end: 20221024
  15. PANTOPRAZOLE [Concomitant]
     Active Substance: PANTOPRAZOLE
     Indication: Gastrooesophageal reflux prophylaxis
     Dosage: UNK
     Route: 065
     Dates: start: 20170720
  16. CLOTRIMAZOLE BIOTECH [Concomitant]
     Indication: Opportunistic infection prophylaxis
     Dosage: UNK
     Route: 065
     Dates: start: 20170721
  17. CALCIUM CARBONATE\VITAMIN D [Concomitant]
     Active Substance: CALCIUM CARBONATE\VITAMIN D
     Indication: Osteoporosis prophylaxis
     Dosage: UNK
     Route: 065
     Dates: start: 20170721
  18. SULFAMETHOXAZOLE\TRIMETHOPRIM [Concomitant]
     Active Substance: SULFAMETHOXAZOLE\TRIMETHOPRIM
     Indication: Prophylaxis
     Dosage: UNK
     Route: 065
     Dates: start: 20170721
  19. METOPROLOL TARTRATE [Concomitant]
     Active Substance: METOPROLOL TARTRATE
     Indication: Atrial fibrillation
     Dosage: UNK
     Route: 065
     Dates: start: 20170801
  20. LORATADINE HYDROCHLORIDE [Concomitant]
     Indication: Rhinitis allergic
     Dosage: UNK
     Route: 065
     Dates: start: 20170807
  21. FLUTICASONE PROPIONATE [Concomitant]
     Active Substance: FLUTICASONE PROPIONATE
     Indication: Rhinitis allergic
     Dosage: UNK
     Route: 065
     Dates: start: 20170810
  22. FUROSEMIDE SODIUM [Concomitant]
     Active Substance: FUROSEMIDE SODIUM
     Indication: Oedema
     Dosage: UNK
     Route: 065
     Dates: start: 20170825
  23. AZITHROMYCIN [Concomitant]
     Active Substance: AZITHROMYCIN
     Indication: Bronchiolitis obliterans syndrome
     Dosage: UNK
     Route: 065
     Dates: start: 20190325
  24. AMINO ACID CHELATE ELEMENTAL MAGNESIUM [Concomitant]
     Indication: Opportunistic infection prophylaxis
     Dosage: UNK
     Route: 065
     Dates: start: 20190906
  25. GEMFIBROZIL [Concomitant]
     Active Substance: GEMFIBROZIL
     Indication: Hyperlipidaemia
     Dosage: UNK
     Route: 065
     Dates: start: 20210813
  26. POSACONAZOLE [Concomitant]
     Active Substance: POSACONAZOLE
     Dosage: UNK
     Route: 065
     Dates: start: 20191001
  27. VALGANCICLOVIR HYDROCHLORIDE [Concomitant]
     Active Substance: VALGANCICLOVIR HYDROCHLORIDE
     Indication: Opportunistic infection prophylaxis
     Dosage: UNK
     Route: 065
     Dates: start: 20211006
  28. FLUTICASONE FUROATE\SALMETEROL XINAFOATE [Concomitant]
     Active Substance: FLUTICASONE FUROATE\SALMETEROL XINAFOATE
     Indication: Bronchiolitis obliterans syndrome
     Dosage: UNK
     Route: 065
     Dates: start: 20220228
  29. EVEROLIMUS [Concomitant]
     Active Substance: EVEROLIMUS
     Indication: Immunosuppression
     Dosage: UNK
     Route: 065
     Dates: start: 20220401, end: 20221005
  30. IBUPROFEN [Concomitant]
     Active Substance: IBUPROFEN
     Indication: Myalgia
     Dosage: UNK
     Route: 065
     Dates: start: 20220731, end: 20220815
  31. NIACINAMIDE [Concomitant]
     Active Substance: NIACINAMIDE
     Indication: Prophylaxis
     Dosage: UNK
     Route: 065
     Dates: start: 20221104
  32. PRAVASTATIN [Concomitant]
     Active Substance: PRAVASTATIN
     Indication: Bronchiolitis obliterans syndrome
     Dosage: UNK
     Route: 065
     Dates: start: 20220401

REACTIONS (1)
  - Skin squamous cell carcinoma recurrent [Recovered/Resolved with Sequelae]

NARRATIVE: CASE EVENT DATE: 20220907
